FAERS Safety Report 7459940-1 (Version None)
Quarter: 2011Q2

REPORT INFORMATION
  Report Type: 
  Country: None (occurrence: None)
  Receive Date: 20110427
  Receipt Date: 20110412
  Transmission Date: 20111010
  Serious: Yes (Disabling)
  Sender: FDA-Public Use
  Company Number: AUR-APL-2011-01260

PATIENT
  Age: 57 Year
  Sex: Female
  Weight: 75 kg

DRUGS (6)
  1. ASPIRIN [Concomitant]
  2. BENDROFLUMETHIAZIDE [Concomitant]
  3. SIMVASTATIN [Suspect]
     Indication: TYPE IIA HYPERLIPIDAEMIA
     Dosage: 40 MG, ORAL
     Route: 048
     Dates: start: 20030101, end: 20060101
  4. ATORVASTATIN [Suspect]
     Indication: TYPE IIA HYPERLIPIDAEMIA
     Dosage: 10 MG, ORAL
     Route: 048
     Dates: start: 20071001, end: 20110301
  5. ESOMEPRAZOLE MAGNESIUM [Concomitant]
  6. LISINOPRIL [Concomitant]

REACTIONS (3)
  - QUALITY OF LIFE DECREASED [None]
  - PAIN [None]
  - AMNESIA [None]
